FAERS Safety Report 10164001 (Version 1)
Quarter: 2014Q2

REPORT INFORMATION
  Report Type: Spontaneous
  Country: US (occurrence: US)
  Receive Date: 20140510
  Receipt Date: 20140510
  Transmission Date: 20141212
  Serious: No
  Sender: FDA-Public Use
  Company Number: US-BRISTOL-MYERS SQUIBB COMPANY-19794916

PATIENT
  Age: 83 Year
  Sex: Male
  Weight: 82.99 kg

DRUGS (2)
  1. BYETTA PEN DISPOSABLE [Suspect]
     Indication: TYPE 2 DIABETES MELLITUS
     Dosage: INTER FOR 2DAYS
     Route: 058
  2. METFORMIN HCL [Suspect]
     Dosage: METFORMIN EXTENDED REALEASE

REACTIONS (6)
  - Dysgeusia [Recovering/Resolving]
  - Diarrhoea [Recovered/Resolved]
  - Decreased appetite [Unknown]
  - Weight decreased [Unknown]
  - Drug administration error [Unknown]
  - Drug dose omission [Unknown]
